FAERS Safety Report 8605253-1 (Version None)
Quarter: 2012Q3

REPORT INFORMATION
  Report Type: 
  Country: None (occurrence: None)
  Receive Date: 20120820
  Receipt Date: 20120813
  Transmission Date: 20120928
  Serious: No
  Sender: FDA-Public Use
  Company Number: US-BAYER-2012-080820

PATIENT
  Age: 60 Year
  Sex: Female

DRUGS (1)
  1. CLIMARA [Suspect]
     Dosage: 0.1 MG, UNK
     Route: 062
     Dates: start: 19970101

REACTIONS (5)
  - ASTHENIA [None]
  - DRY EYE [None]
  - DRY SKIN [None]
  - HOT FLUSH [None]
  - SKIN FISSURES [None]
